FAERS Safety Report 8217426 (Version 4)
Quarter: 2012Q4

REPORT INFORMATION
  Report Type: Spontaneous
  Country: None (occurrence: None)
  Receive Date: 20111024
  Receipt Date: 20120905
  Transmission Date: 20130627
  Serious: Yes (Death, Hospitalization, Other)
  Sender: FDA-Public Use
  Company Number: AUR-APL-2011-05533

PATIENT
  Age: 60 Year
  Sex: Male

DRUGS (16)
  1. METFORMIN HYDROCHLORIDE [Suspect]
     Indication: TYPE 2 DIABETES MELLITUS
     Dates: end: 20110711
  2. DALTEPARIN SODIUM [Suspect]
     Indication: PRODUCT USED FOR UNKNOWN INDICATION
     Dosage: (1 dosage form 1 day)
     Dates: start: 20110711
  3. ASPIRIN [Suspect]
     Indication: PRODUCT USED FOR UNKNOWN INDICATION
     Dates: end: 20110722
  4. UNSPECIFIED INGREDIENT [Suspect]
     Indication: TYPE 2 DIABETES MELLITUS
     Dates: start: 20110414, end: 20110711
  5. INSULATARD [Suspect]
     Indication: DIABETES MELLITUS
     Dates: start: 20110718
  6. NOVOLOG [Suspect]
     Indication: DIABETES MELLITUS
     Dates: start: 20110711, end: 20110719
  7. CLOPIDOGREL [Suspect]
     Indication: PRODUCT USED FOR UNKNOWN INDICATION
  8. LACTULOSE [Suspect]
     Indication: PRODUCT USED FOR UNKNOWN INDICATION
     Dates: start: 20110720, end: 20110725
  9. SODIUM PICOSULFATE [Suspect]
     Indication: PRODUCT USED FOR UNKNOWN INDICATION
     Dates: start: 20110712, end: 20110725
  10. OXYCONTIN [Concomitant]
  11. ASPIRIN [Concomitant]
  12. OMEPRAZOLE [Concomitant]
  13. FUROSEMIDE [Concomitant]
  14. SPIRONOLACTONE [Concomitant]
  15. IMPORTAL (LACTITOL) [Concomitant]
  16. SAXAGLIPTIN [Suspect]
     Dates: start: 20110414

REACTIONS (18)
  - Inguinal hernia [None]
  - Portal vein thrombosis [None]
  - Pancreatitis [None]
  - Ascites [None]
  - Hepatic cirrhosis [None]
  - Haematuria [None]
  - Dehydration [None]
  - Cough [None]
  - Portal hypertension [None]
  - Arrhythmia [None]
  - Nausea [None]
  - Sudden cardiac death [None]
  - Pulmonary embolism [None]
  - Chest pain [None]
  - Dyspnoea [None]
  - Right ventricular failure [None]
  - Gastric varices [None]
  - Abdominal pain [None]
